FAERS Safety Report 8412144-8 (Version None)
Quarter: 2012Q2

REPORT INFORMATION
  Report Type: 
  Country: None (occurrence: None)
  Receive Date: 20120605
  Receipt Date: 20120504
  Transmission Date: 20120825
  Serious: No
  Sender: FDA-Public Use
  Company Number: US-AMGEN-USASP2012028343

PATIENT
  Age: 59 Year
  Sex: Female

DRUGS (1)
  1. ENBREL [Suspect]
     Indication: RHEUMATOID ARTHRITIS
     Dosage: 50 MG, QWK
     Dates: start: 20040301, end: 20120412

REACTIONS (6)
  - INFLAMMATION [None]
  - PAIN [None]
  - FATIGUE [None]
  - NASOPHARYNGITIS [None]
  - INFLUENZA [None]
  - SINUSITIS [None]
